FAERS Safety Report 5770583-8 (Version None)
Quarter: 2008Q2

REPORT INFORMATION
  Report Type: 
  Country: None (occurrence: None)
  Receive Date: 20080613
  Receipt Date: 20080506
  Transmission Date: 20081010
  Serious: No
  Sender: FDA-Public Use
  Company Number: US-ABBOTT-08P-163-0450711-00

PATIENT
  Sex: Female
  Weight: 77.18 kg

DRUGS (11)
  1. HUMIRA [Suspect]
     Indication: PSORIATIC ARTHROPATHY
     Route: 058
     Dates: start: 20080422
  2. METHOTREXATE [Concomitant]
     Indication: PSORIATIC ARTHROPATHY
     Route: 048
     Dates: start: 20080101
  3. LUNESTA [Concomitant]
     Indication: INSOMNIA
     Dosage: EVERY HOUR OF SLEEP
     Route: 048
     Dates: start: 20020101
  4. NAPROSYN [Concomitant]
     Indication: INFLAMMATION
     Dosage: EVERY 12 HOURS
     Route: 048
     Dates: start: 20040101
  5. HYDROCODONE [Concomitant]
     Indication: BACK PAIN
     Dosage: 7.5/750MG ONE TAB TID
     Route: 048
     Dates: start: 20070101
  6. ALLEGRA-D [Concomitant]
     Indication: HYPERSENSITIVITY
     Dosage: 60/120MG EVERY 12 HOURS
     Route: 048
     Dates: start: 20030101
  7. PREDNISONE TAB [Concomitant]
     Indication: INFLAMMATION
     Dosage: TAPER DOSE
     Route: 048
     Dates: start: 20080101
  8. CARISOPRODOL [Concomitant]
     Indication: MUSCLE RELAXANT THERAPY
     Route: 048
     Dates: start: 20040101
  9. OMEPRAZOLE [Concomitant]
     Indication: GASTROOESOPHAGEAL REFLUX DISEASE
     Route: 048
     Dates: start: 20070101
  10. DULOXETINE HYDROCHLORIDE [Concomitant]
     Indication: DEPRESSION
     Route: 048
     Dates: start: 20070101
  11. DULOXETINE HYDROCHLORIDE [Concomitant]
     Indication: NEUROPATHY PERIPHERAL

REACTIONS (1)
  - ACCIDENTAL EXPOSURE [None]
